FAERS Safety Report 26140330 (Version 1)
Quarter: 2025Q4

REPORT INFORMATION
  Report Type: Spontaneous
  Country: US (occurrence: US)
  Receive Date: 20251210
  Receipt Date: 20251210
  Transmission Date: 20260117
  Serious: Yes (Hospitalization)
  Sender: ARDELYX
  Company Number: US-ARDELYX-2025ARDX008821

PATIENT
  Sex: Female

DRUGS (2)
  1. XPHOZAH [Suspect]
     Active Substance: TENAPANOR HYDROCHLORIDE
     Indication: Hyperphosphataemia
     Dosage: 30 MG, QD
     Route: 065
     Dates: start: 2025, end: 2025
  2. XPHOZAH [Suspect]
     Active Substance: TENAPANOR HYDROCHLORIDE
     Dosage: 10 MG, QD
     Route: 065
     Dates: start: 202511

REACTIONS (7)
  - General physical health deterioration [Unknown]
  - Diarrhoea [Recovered/Resolved]
  - Fall [Unknown]
  - Insurance issue [Unknown]
  - Wrong technique in product usage process [Unknown]
  - Gait inability [Unknown]
  - Therapy interrupted [Unknown]

NARRATIVE: CASE EVENT DATE: 20250101
